FAERS Safety Report 6809890-6 (Version None)
Quarter: 2010Q2

REPORT INFORMATION
  Report Type: 
  Country: None (occurrence: None)
  Receive Date: 20100625
  Receipt Date: 20100610
  Transmission Date: 20101027
  Serious: Yes (Hospitalization)
  Sender: FDA-Public Use
  Company Number: 1000014606

PATIENT
  Age: 70 Year
  Sex: Female

DRUGS (8)
  1. CITALOPRAM HYDROBROMIDE [Suspect]
     Indication: DEPRESSION
     Dosage: 60 MG (60 MG, 1 IN 1 D), ORAL
     Route: 048
     Dates: start: 20100324, end: 20100406
  2. CITALOPRAM HYDROBROMIDE [Concomitant]
     Indication: DEPRESSION
     Dosage: 40 MG (40 MG, 1 IN 1 D),ORAL
     Route: 048
     Dates: start: 20100407
  3. CITALOPRAM HYDROBROMIDE [Suspect]
     Indication: DEPRESSION
     Dosage: 20 MG (20 MG, 1 IN 1 D), ORAL; 40 MG (40 MG, 1 IN 1 D), ORAL
     Route: 048
     Dates: start: 20091210, end: 20100318
  4. CITALOPRAM HYDROBROMIDE [Suspect]
     Indication: DEPRESSION
     Dosage: 20 MG (20 MG, 1 IN 1 D), ORAL; 40 MG (40 MG, 1 IN 1 D), ORAL
     Route: 048
     Dates: start: 20100319, end: 20100323
  5. 4- (N- (S-GLUTATHIONYLACETYL) AMINO) PHENYLARSENOXIDE (GSAO) (INJECTIO [Suspect]
     Indication: OVARIAN CANCER
     Dosage: SEE IMAGE
     Route: 041
     Dates: start: 20100315, end: 20100326
  6. 4- (N- (S-GLUTATHIONYLACETYL) AMINO) PHENYLARSENOXIDE (GSAO) (INJECTIO [Suspect]
     Indication: OVARIAN CANCER
     Dosage: SEE IMAGE
     Route: 041
     Dates: start: 20100111
  7. 4- (N- (S-GLUTATHIONYLACETYL) AMINO) PHENYLARSENOXIDE (GSAO) (INJECTIO [Suspect]
     Indication: OVARIAN CANCER
     Dosage: SEE IMAGE
     Route: 041
     Dates: start: 20100201
  8. CLOMIPRAMIDE [Concomitant]

REACTIONS (16)
  - ANXIETY [None]
  - BLOOD ACID PHOSPHATASE DECREASED [None]
  - BLOOD ALKALINE PHOSPHATASE INCREASED [None]
  - BLOOD MAGNESIUM DECREASED [None]
  - CONVULSION [None]
  - DEPRESSION [None]
  - DISEASE PROGRESSION [None]
  - HAEMOGLOBIN DECREASED [None]
  - LYMPHOCYTE COUNT INCREASED [None]
  - MENINGIOMA [None]
  - NEOPLASM MALIGNANT [None]
  - NEUTROPHIL COUNT INCREASED [None]
  - OBSESSIVE-COMPULSIVE DISORDER [None]
  - PSYCHOTIC DISORDER [None]
  - SUICIDE ATTEMPT [None]
  - WHITE BLOOD CELL COUNT INCREASED [None]
